FAERS Safety Report 9561859 (Version 1)
Quarter: 2013Q3

REPORT INFORMATION
  Report Type: Report from Study
  Country: DE (occurrence: DE)
  Receive Date: 20130927
  Receipt Date: 20130927
  Transmission Date: 20140515
  Serious: Yes (Other)
  Sender: FDA-Public Use
  Company Number: DE-ASTELLAS-2013EU008200

PATIENT
  Sex: Male
  Weight: 85 kg

DRUGS (3)
  1. XTANDI [Suspect]
     Indication: PROSTATE CANCER METASTATIC
     Dosage: 160 MG, UID/QD
     Route: 048
     Dates: start: 20130903
  2. TRENANTONE [Concomitant]
     Indication: PROSTATE CANCER METASTATIC
     Dosage: UNK
     Route: 058
  3. NOVALGIN                           /00169801/ [Concomitant]
     Dosage: UNK
     Route: 065

REACTIONS (1)
  - Muscle spasms [Unknown]
